FAERS Safety Report 9553928 (Version 3)
Quarter: 2013Q4

REPORT INFORMATION
  Report Type: Spontaneous
  Country: CH (occurrence: CH)
  Receive Date: 20130925
  Receipt Date: 20131118
  Transmission Date: 20140711
  Serious: Yes (Other)
  Sender: FDA-Public Use
  Company Number: CH-ABBVIE-13P-151-1150348-00

PATIENT
  Sex: Female
  Weight: 55 kg

DRUGS (1)
  1. HUMIRA [Suspect]
     Indication: PSORIASIS
     Dates: start: 20120807, end: 20130918

REACTIONS (4)
  - C-reactive protein increased [Unknown]
  - Lobar pneumonia [Unknown]
  - Lung infiltration [Not Recovered/Not Resolved]
  - Pneumonia [Unknown]
